FAERS Safety Report 5001691-7 (Version None)
Quarter: 2006Q2

REPORT INFORMATION
  Report Type: 
  Country: None (occurrence: None)
  Receive Date: 20060513
  Receipt Date: 20060513
  Transmission Date: 20061013
  Serious: No
  Sender: FDA-Public Use
  Company Number: None

PATIENT
  Sex: Female
  Weight: 62.1 kg

DRUGS (2)
  1. CISPLATIN [Suspect]
     Indication: SMALL CELL LUNG CANCER STAGE UNSPECIFIED
     Dosage: 244 MG
     Dates: start: 20060329, end: 20060421
  2. ETOPOSIDE [Suspect]
     Dosage: 1702 MG
     Dates: start: 20060329, end: 20060423

REACTIONS (6)
  - BURNING SENSATION [None]
  - DISCOMFORT [None]
  - DYSPHAGIA [None]
  - INFREQUENT BOWEL MOVEMENTS [None]
  - NAUSEA [None]
  - VOMITING [None]
